FAERS Safety Report 5467260-X (Version None)
Quarter: 2007Q3

REPORT INFORMATION
  Report Type: 
  Country: None (occurrence: None)
  Receive Date: 20070925
  Receipt Date: 20070924
  Transmission Date: 20080115
  Serious: Yes (Death)
  Sender: FDA-Public Use
  Company Number: PHBS2007IE15260

PATIENT
  Age: 53 Year
  Sex: Male

DRUGS (2)
  1. EXFORGE [Suspect]
     Indication: HYPERTENSION
     Dosage: VALS 80 / HCT 12.5 MG/DAY
     Route: 048
     Dates: start: 20070905
  2. NEOCLARITYN [Concomitant]
     Indication: PRURITUS
     Dosage: UNK, PRN
     Route: 048
     Dates: start: 20070905

REACTIONS (1)
  - ARRHYTHMIA [None]
